FAERS Safety Report 4410970-3 (Version None)
Quarter: 2004Q3

REPORT INFORMATION
  Report Type: 
  Country: None (occurrence: None)
  Receive Date: 20040729
  Receipt Date: 20040126
  Transmission Date: 20050211
  Serious: Yes (Hospitalization)
  Sender: FDA-Public Use
  Company Number: US-GLAXOSMITHKLINE-A0496915A

PATIENT
  Age: 45 Year
  Sex: Male

DRUGS (4)
  1. AVANDIA [Suspect]
     Dates: start: 20000921, end: 20020101
  2. CELEXA [Concomitant]
     Indication: ILL-DEFINED DISORDER
  3. PROZAC [Concomitant]
  4. VIAGRA [Concomitant]
     Indication: ERECTILE DYSFUNCTION

REACTIONS (3)
  - HEPATIC CIRRHOSIS [None]
  - JAUNDICE [None]
  - LIVER DISORDER [None]
